FAERS Safety Report 21818742 (Version 1)
Quarter: 2023Q1

REPORT INFORMATION
  Report Type: Report from Study
  Country: US (occurrence: US)
  Receive Date: 20230104
  Receipt Date: 20230104
  Transmission Date: 20230418
  Serious: No
  Sender: FDA-Public Use
  Company Number: US-ABBVIE-4224094

PATIENT
  Sex: Female

DRUGS (1)
  1. HUMIRA [Suspect]
     Active Substance: ADALIMUMAB
     Indication: Rheumatoid arthritis
     Route: 058
     Dates: start: 20220803

REACTIONS (4)
  - Hypertension [Not Recovered/Not Resolved]
  - Headache [Unknown]
  - Tinnitus [Unknown]
  - Dissociation [Unknown]

NARRATIVE: CASE EVENT DATE: 20220101
